FAERS Safety Report 4595663-4 (Version None)
Quarter: 2005Q1

REPORT INFORMATION
  Report Type: 
  Country: None (occurrence: None)
  Receive Date: 20050224
  Receipt Date: 20041119
  Transmission Date: 20050727
  Serious: Yes (Hospitalization)
  Sender: FDA-Public Use
  Company Number: 9344

PATIENT
  Age: 52 Year
  Sex: Female

DRUGS (5)
  1. CARBOPLATIN [Suspect]
     Dosage: 350 MG FREQ
     Route: 042
     Dates: start: 20040806, end: 20040806
  2. METHYLPREDNISOLONE SODIUM SUCCINATE [Concomitant]
  3. CLORAZEPATE DIPOTASSIUM [Concomitant]
  4. RANITIDINE [Concomitant]
  5. TAXOL [Concomitant]

REACTIONS (2)
  - PARAESTHESIA [None]
  - RASH [None]
